FAERS Safety Report 5307312-8 (Version None)
Quarter: 2007Q2

REPORT INFORMATION
  Report Type: 
  Country: None (occurrence: None)
  Receive Date: 20070425
  Receipt Date: 20051019
  Transmission Date: 20071010
  Serious: Yes (Death, Hospitalization)
  Sender: FDA-Public Use
  Company Number: US-ROCHE-421753

PATIENT
  Age: 83 Year
  Sex: Female

DRUGS (14)
  1. CAPECITABINE [Suspect]
     Indication: COLON CANCER
     Dosage: INTERMITTENT THERAPY OF 14 DAYS TREATMENT, FOLLOWED BY 7 DAYS REST.
     Route: 048
     Dates: start: 20050502, end: 20050904
  2. CETUXIMAB [Suspect]
     Indication: COLON CANCER
     Route: 042
     Dates: start: 20050502, end: 20050830
  3. IRINOTECAN [Suspect]
     Indication: COLON CANCER
     Route: 042
     Dates: start: 20050502, end: 20050830
  4. VASOTEC [Concomitant]
  5. DIGOXIN [Concomitant]
  6. LASIX [Concomitant]
  7. POTASSIUM CHLORIDE [Concomitant]
  8. SYNTHROID [Concomitant]
  9. MECLIZINE [Concomitant]
  10. PRILOSEC [Concomitant]
  11. HUMULIN R [Concomitant]
  12. COMPAZINE [Concomitant]
  13. LOMOTIL [Concomitant]
  14. DARVOCET [Concomitant]

REACTIONS (7)
  - ASTHENIA [None]
  - DIARRHOEA [None]
  - MALAISE [None]
  - MALIGNANT NEOPLASM PROGRESSION [None]
  - NEOPLASM MALIGNANT [None]
  - ORAL INTAKE REDUCED [None]
  - URINARY TRACT INFECTION [None]
